FAERS Safety Report 6280071-0 (Version None)
Quarter: 2009Q3

REPORT INFORMATION
  Report Type: 
  Country: None (occurrence: None)
  Receive Date: 20090723
  Receipt Date: 20090720
  Transmission Date: 20100115
  Serious: Yes (Death)
  Sender: FDA-Public Use
  Company Number: US-CELGENEUS-163-20785-09051906

PATIENT
  Sex: Male

DRUGS (2)
  1. THALOMID [Suspect]
     Indication: MULTIPLE MYELOMA
     Route: 048
     Dates: start: 20090501, end: 20090601
  2. THALOMID [Suspect]
     Dosage: 50-200MG
     Route: 048
     Dates: start: 20081101, end: 20090101

REACTIONS (1)
  - GENERAL PHYSICAL HEALTH DETERIORATION [None]
